FAERS Safety Report 5598408-4 (Version None)
Quarter: 2008Q1

REPORT INFORMATION
  Report Type: 
  Country: None (occurrence: None)
  Receive Date: 20080122
  Receipt Date: 20080110
  Transmission Date: 20080703
  Serious: Yes (Hospitalization)
  Sender: FDA-Public Use
  Company Number: NP-JNJFOC-20071206316

PATIENT
  Age: 45 Year
  Sex: Male

DRUGS (3)
  1. ACETAMINOPHEN [Suspect]
     Indication: PAIN
     Route: 048
  2. ACETAMINOPHEN [Suspect]
     Indication: HEADACHE
     Route: 048
  3. ACETAMINOPHEN [Suspect]
     Indication: PYREXIA
     Dosage: X 2 DAYS
     Route: 048

REACTIONS (2)
  - ACCIDENTAL OVERDOSE [None]
  - ACUTE HEPATIC FAILURE [None]
